FAERS Safety Report 9374794 (Version 1)
Quarter: 2013Q2

REPORT INFORMATION
  Report Type: Spontaneous
  Country: IT (occurrence: IT)
  Receive Date: 20130628
  Receipt Date: 20130628
  Transmission Date: 20140414
  Serious: Yes (Hospitalization)
  Sender: FDA-Public Use
  Company Number: IT-JNJFOC-20130617457

PATIENT
  Age: 18 Year
  Sex: Female

DRUGS (1)
  1. ANTALGIL [Suspect]
     Indication: DYSMENORRHOEA
     Route: 048
     Dates: start: 20130407, end: 20130507

REACTIONS (3)
  - Angioedema [Recovering/Resolving]
  - Rash [Recovering/Resolving]
  - Adverse drug reaction [Recovering/Resolving]
